FAERS Safety Report 7336621-6 (Version None)
Quarter: 2011Q1

REPORT INFORMATION
  Report Type: 
  Country: None (occurrence: None)
  Receive Date: 20110307
  Receipt Date: 20110228
  Transmission Date: 20110831
  Serious: Yes (Hospitalization, Other)
  Sender: FDA-Public Use
  Company Number: JP-AMGEN-JPNSP2011011134

PATIENT
  Sex: Female

DRUGS (2)
  1. ENBREL [Suspect]
     Indication: RHEUMATOID ARTHRITIS
     Dosage: UNK
     Route: 058
  2. AZULFIDINE [Concomitant]
     Dosage: UNK
     Route: 048

REACTIONS (3)
  - THROMBOCYTOPENIA [None]
  - HELICOBACTER INFECTION [None]
  - IDIOPATHIC THROMBOCYTOPENIC PURPURA [None]
